FAERS Safety Report 9182724 (Version 1)
Quarter: 2013Q1

REPORT INFORMATION
  Report Type: Spontaneous
  Country: US (occurrence: US)
  Receive Date: 20130322
  Receipt Date: 20130322
  Transmission Date: 20140127
  Serious: Yes (Other)
  Sender: FDA-Public Use
  Company Number: US-ELI_LILLY_AND_COMPANY-US201303005224

PATIENT
  Sex: Female

DRUGS (1)
  1. ZYPREXA [Suspect]
     Dosage: 20 MG, QD
     Dates: start: 20121008

REACTIONS (3)
  - Craniocerebral injury [Unknown]
  - Cognitive disorder [Unknown]
  - Drug dose omission [Unknown]
